FAERS Safety Report 11289054 (Version 1)
Quarter: 2015Q3

REPORT INFORMATION
  Report Type: Spontaneous
  Country: US (occurrence: US)
  Receive Date: 20150721
  Receipt Date: 20150721
  Transmission Date: 20151125
  Serious: No
  Sender: FDA-Public Use
  Company Number: US-UNITED THERAPEUTICS-UNT-2015-000419

PATIENT
  Age: 80 Year
  Sex: Female
  Weight: 52.97 kg

DRUGS (2)
  1. ASPIRIN                            /00002701/ [Concomitant]
     Active Substance: ASPIRIN
     Indication: PRODUCT USED FOR UNKNOWN INDICATION
  2. REMODULIN [Suspect]
     Active Substance: TREPROSTINIL
     Indication: PULMONARY HYPERTENSION
     Dosage: 0.002 ?G/KG/MIN, CONTINUING
     Route: 058
     Dates: start: 20150110

REACTIONS (8)
  - Insomnia [Unknown]
  - Anxiety [Unknown]
  - Nervousness [Unknown]
  - Malaise [Unknown]
  - Back pain [Unknown]
  - Nausea [Unknown]
  - Decreased appetite [Unknown]
  - Tachycardia [Unknown]

NARRATIVE: CASE EVENT DATE: 201501
